FAERS Safety Report 6330179-6 (Version None)
Quarter: 2009Q3

REPORT INFORMATION
  Report Type: 
  Country: None (occurrence: None)
  Receive Date: 20090827
  Receipt Date: 20090818
  Transmission Date: 20100115
  Serious: Yes (Hospitalization)
  Sender: FDA-Public Use
  Company Number: IR-JNJFOC-20090805953

PATIENT
  Age: 37 Year
  Sex: Male
  Weight: 98 kg

DRUGS (6)
  1. REMICADE [Suspect]
     Dosage: THIRD INFUSION,FREQUENCY: ^0, 2, 6^
     Route: 042
  2. REMICADE [Suspect]
     Dosage: 2ND INFUSION; FREQUENCY: ^0, 2, 6'
     Route: 042
  3. REMICADE [Suspect]
     Indication: PSORIATIC ARTHROPATHY
     Dosage: IST INFUSION; FREQUENCY: ^0, 2, 6'
     Route: 042
  4. METHOTREXATE [Concomitant]
     Indication: PSORIATIC ARTHROPATHY
     Route: 048
  5. GLIBENCLAMIDE [Concomitant]
     Indication: DIABETES MELLITUS
  6. METFORMIN HCL [Concomitant]
     Indication: DIABETES MELLITUS

REACTIONS (2)
  - JOINT SWELLING [None]
  - MUSCULOSKELETAL PAIN [None]
